FAERS Safety Report 14100045 (Version 1)
Quarter: 2017Q4

REPORT INFORMATION
  Report Type: Spontaneous
  Country: US (occurrence: US)
  Receive Date: 20171017
  Receipt Date: 20171017
  Transmission Date: 20180321
  Serious: Yes (Hospitalization, Other)
  Sender: FDA-Public Use
  Company Number: US-TEVA-816569USA

PATIENT
  Sex: Female

DRUGS (1)
  1. COPAXONE [Suspect]
     Active Substance: GLATIRAMER ACETATE
     Dosage: UNKNOWN FORM STRENGTH
     Route: 065

REACTIONS (6)
  - Gait disturbance [Recovering/Resolving]
  - Tremor [Recovered/Resolved]
  - Chills [Unknown]
  - Fatigue [Recovering/Resolving]
  - Multiple sclerosis relapse [Unknown]
  - Headache [Recovering/Resolving]
